FAERS Safety Report 21461449 (Version 2)
Quarter: 2024Q1

REPORT INFORMATION
  Report Type: Spontaneous
  Country: NL (occurrence: NL)
  Receive Date: 20221015
  Receipt Date: 20240312
  Transmission Date: 20240410
  Serious: Yes (Other)
  Sender: FDA-Public Use
  Company Number: NL-TEVA-2022-NL-2079875

PATIENT
  Age: 15 Year
  Sex: Female

DRUGS (4)
  1. ACETAMINOPHEN [Suspect]
     Active Substance: ACETAMINOPHEN
     Indication: Product used for unknown indication
     Dosage: 2000 MILLIGRAM
     Route: 065
  2. PREGABALIN [Suspect]
     Active Substance: PREGABALIN
     Indication: Product used for unknown indication
     Dosage: 300 MILLIGRAM
     Route: 048
  3. PREGABALIN [Suspect]
     Active Substance: PREGABALIN
     Dosage: 3003.8 MILLIGRAM/KILOGRAM
     Route: 065
  4. ACECLOFENAC\ACETAMINOPHEN [Suspect]
     Active Substance: ACECLOFENAC\ACETAMINOPHEN
     Indication: Product used for unknown indication
     Dosage: 2000 MILLIGRAM
     Route: 065

REACTIONS (7)
  - Headache [Unknown]
  - Toxicity to various agents [Unknown]
  - Intentional overdose [Unknown]
  - Somnolence [Unknown]
  - Overdose [Unknown]
  - Nausea [Unknown]
  - Dizziness [Unknown]
